FAERS Safety Report 26114684 (Version 2)
Quarter: 2025Q4

REPORT INFORMATION
  Report Type: Spontaneous
  Country: EU (occurrence: EU)
  Receive Date: 20251202
  Receipt Date: 20251214
  Transmission Date: 20260118
  Serious: Yes (Hospitalization, Other)
  Sender: IPSEN BIOPHARMACEUTICALS, INC.
  Company Number: EU-I.R.I.S.-S25017048

PATIENT
  Age: 80 Year
  Sex: Male

DRUGS (12)
  1. ONIVYDE [Suspect]
     Active Substance: IRINOTECAN HYDROCHLORIDE
     Indication: Ductal adenocarcinoma of pancreas
     Dosage: 50 MG/M2, EVERY 2 WEEKS
     Dates: start: 20250828, end: 20250828
  2. ONIVYDE [Suspect]
     Active Substance: IRINOTECAN HYDROCHLORIDE
     Dosage: 40 MG/M2, EVERY 2 WEEKS
     Dates: start: 202510
  3. ONIVYDE [Suspect]
     Active Substance: IRINOTECAN HYDROCHLORIDE
  4. OXALIPLATIN [Suspect]
     Active Substance: OXALIPLATIN
     Indication: Ductal adenocarcinoma of pancreas
     Dosage: 48 MG/M2, QD
     Dates: start: 20250828, end: 20250828
  5. OXALIPLATIN [Suspect]
     Active Substance: OXALIPLATIN
     Dosage: 48 MG/M2, EVERY 2 WEEKS
     Dates: start: 202510, end: 202511
  6. OXALIPLATIN [Suspect]
     Active Substance: OXALIPLATIN
     Dosage: 36 MG/M2, EVERY 2 WEEKS
     Dates: start: 20251124
  7. LEUCOVORIN [Suspect]
     Active Substance: LEUCOVORIN\LEUCOVORIN CALCIUM
     Indication: Ductal adenocarcinoma of pancreas
     Dosage: 400 MG/M2, QD
     Dates: start: 20250828, end: 20250828
  8. LEUCOVORIN [Suspect]
     Active Substance: LEUCOVORIN\LEUCOVORIN CALCIUM
     Dosage: 320 MG/M2
     Dates: start: 202510
  9. LEUCOVORIN [Suspect]
     Active Substance: LEUCOVORIN\LEUCOVORIN CALCIUM
     Dosage: 320 MG/M2
     Dates: start: 20251124
  10. FLUOROURACIL [Suspect]
     Active Substance: FLUOROURACIL
     Indication: Ductal adenocarcinoma of pancreas
     Dosage: 2400 MG/M2, QD
     Dates: start: 20250828, end: 20250828
  11. FLUOROURACIL [Suspect]
     Active Substance: FLUOROURACIL
     Dosage: 1920 MG/M2, EVERY 2 WEEKS
     Dates: start: 202510
  12. FLUOROURACIL [Suspect]
     Active Substance: FLUOROURACIL
     Dosage: 1920 MG/M2
     Dates: start: 20251124

REACTIONS (2)
  - Neuropathy peripheral [Unknown]
  - Diarrhoea [Recovered/Resolved]

NARRATIVE: CASE EVENT DATE: 20250901
